FAERS Safety Report 4316912-3 (Version None)
Quarter: 2004Q1

REPORT INFORMATION
  Report Type: 
  Country: None (occurrence: None)
  Receive Date: 20040308
  Receipt Date: 20031128
  Transmission Date: 20041129
  Serious: Yes (Life-Threatening)
  Sender: FDA-Public Use
  Company Number: ALMO2003030

PATIENT
  Age: 56 Year
  Sex: Female

DRUGS (1)
  1. ALMOGRAN [Suspect]
     Indication: MIGRAINE
     Dosage: 12.5 MG DAILY PO
     Route: 048
     Dates: start: 20031128, end: 20031128

REACTIONS (1)
  - ANGIONEUROTIC OEDEMA [None]
